FAERS Safety Report 16826016 (Version 2)
Quarter: 2019Q4

REPORT INFORMATION
  Report Type: Report from Study
  Country: IT (occurrence: IT)
  Receive Date: 20190919
  Receipt Date: 20191207
  Transmission Date: 20200122
  Serious: Yes (Hospitalization)
  Sender: FDA-Public Use
  Company Number: IT-ACCORD-155128

PATIENT
  Age: 61 Year
  Sex: Male

DRUGS (2)
  1. CARDIOASPIRIN [Interacting]
     Active Substance: ASPIRIN
     Indication: PRODUCT USED FOR UNKNOWN INDICATION
     Dosage: STRENGTH: 100 MG
     Route: 048
  2. AMLODIPINE [Suspect]
     Active Substance: AMLODIPINE BESYLATE
     Indication: HYPERTENSION
     Route: 048

REACTIONS (2)
  - Drug interaction [Unknown]
  - Haematochezia [Recovered/Resolved]

NARRATIVE: CASE EVENT DATE: 20190817
